FAERS Safety Report 12802605 (Version 1)
Quarter: 2016Q4

REPORT INFORMATION
  Report Type: Spontaneous
  Country: CN (occurrence: CN)
  Receive Date: 20161003
  Receipt Date: 20161003
  Transmission Date: 20170207
  Serious: Yes (Hospitalization, Other)
  Sender: FDA-Public Use
  Company Number: CN-VIIV HEALTHCARE LIMITED-CN2016GSK138714

PATIENT
  Age: 42 Year
  Sex: Male

DRUGS (6)
  1. THYMOSIN [Concomitant]
     Active Substance: THYMOSIN
     Indication: PRODUCT USED FOR UNKNOWN INDICATION
     Dosage: 15 MG, QD
  2. HYDROCHLOROTHIAZIDE. [Concomitant]
     Active Substance: HYDROCHLOROTHIAZIDE
     Indication: ABDOMINAL DISTENSION
     Dosage: 50 MG, BID
  3. SPIRONOLACTONE. [Concomitant]
     Active Substance: SPIRONOLACTONE
     Indication: ABDOMINAL DISTENSION
     Dosage: 40 MG, BID
  4. SPIRONOLACTONE. [Concomitant]
     Active Substance: SPIRONOLACTONE
     Indication: OEDEMA PERIPHERAL
  5. LAMIVUDINE. [Suspect]
     Active Substance: LAMIVUDINE
     Indication: HEPATITIS B
     Dosage: 100 MG, QD
     Route: 048
  6. HYDROCHLOROTHIAZIDE. [Concomitant]
     Active Substance: HYDROCHLOROTHIAZIDE
     Indication: OEDEMA PERIPHERAL

REACTIONS (13)
  - Scleral disorder [Recovering/Resolving]
  - Drug resistance [Unknown]
  - Condition aggravated [Unknown]
  - Pathogen resistance [Unknown]
  - Nausea [Unknown]
  - Asthenia [Recovering/Resolving]
  - Hepatic failure [Recovering/Resolving]
  - Abdominal distension [Unknown]
  - Liver disorder [Recovering/Resolving]
  - Decreased appetite [Recovering/Resolving]
  - Yellow skin [Recovering/Resolving]
  - Skin haemorrhage [Unknown]
  - Jaundice [Unknown]

NARRATIVE: CASE EVENT DATE: 20150408
